FAERS Safety Report 8909380 (Version 1)
Quarter: 2012Q4

REPORT INFORMATION
  Report Type: Spontaneous
  Country: GB (occurrence: None)
  Receive Date: 20121109
  Receipt Date: 20121109
  Transmission Date: 20130627
  Serious: Yes (Other)
  Sender: FDA-Public Use
  Company Number: GB-DEXPHARM-20121409

PATIENT
  Age: 72 Year
  Sex: Female
  Weight: 67 kg

DRUGS (7)
  1. OMEPRAZOLE [Suspect]
  2. AMOXICILLIN [Suspect]
     Dates: start: 20120714, end: 20120821
  3. ASPIRIN [Suspect]
     Dates: start: 20120709
  4. FERROUS GLUCONATE [Concomitant]
  5. OLMESARTAN MEDOXOMIL [Concomitant]
  6. QUININE [Concomitant]
  7. SALBUTAMOL [Concomitant]

REACTIONS (2)
  - Hypocalcaemia [None]
  - Hypomagnesaemia [None]
